FAERS Safety Report 22320975 (Version 1)
Quarter: 2023Q2

REPORT INFORMATION
  Report Type: Spontaneous
  Country: US (occurrence: None)
  Receive Date: 20230512
  Receipt Date: 20230512
  Transmission Date: 20230722
  Serious: Yes (Hospitalization)
  Sender: FDA-Public Use
  Company Number: None

PATIENT
  Age: 53 Year
  Sex: Male

DRUGS (1)
  1. TEMOZOLOMIDE [Suspect]
     Active Substance: TEMOZOLOMIDE
     Indication: Brain neoplasm malignant
     Dosage: FREQUENCY : DAILY;?
     Route: 048
     Dates: start: 202302

REACTIONS (8)
  - Heart rate decreased [None]
  - Pulmonary embolism [None]
  - Atrial fibrillation [None]
  - Seizure [None]
  - Somnolence [None]
  - Urinary incontinence [None]
  - Anal incontinence [None]
  - Unresponsive to stimuli [None]

NARRATIVE: CASE EVENT DATE: 20230406
